FAERS Safety Report 14612217 (Version 5)
Quarter: 2018Q2

REPORT INFORMATION
  Report Type: Spontaneous
  Country: US (occurrence: US)
  Receive Date: 20180308
  Receipt Date: 20180608
  Transmission Date: 20180711
  Serious: Yes (Death, Congenital Anomaly, Other)
  Sender: FDA-Public Use
  Company Number: PHEH2018US008872

PATIENT
  Age: 4 Month
  Sex: Female

DRUGS (2)
  1. ZOFRAN [Suspect]
     Active Substance: ONDANSETRON HYDROCHLORIDE
     Indication: FOETAL EXPOSURE DURING PREGNANCY
     Route: 064
  2. ZOFRAN [Suspect]
     Active Substance: ONDANSETRON HYDROCHLORIDE
     Indication: FOETAL EXPOSURE DURING PREGNANCY
     Dosage: MOTHER^S DOSE: 4 MG
     Route: 064

REACTIONS (14)
  - Injury [Unknown]
  - Gastrooesophageal reflux disease [Unknown]
  - Foetal exposure during pregnancy [Unknown]
  - Hypoplastic left heart syndrome [Unknown]
  - Right ventricular dysfunction [Unknown]
  - Atrial septal defect [Unknown]
  - Failure to thrive [Unknown]
  - Hypoxia [Unknown]
  - Death [Fatal]
  - Cardiogenic shock [Unknown]
  - Vesicoureteric reflux [Unknown]
  - Acute kidney injury [Unknown]
  - Tricuspid valve incompetence [Unknown]
  - Hydronephrosis [Unknown]

NARRATIVE: CASE EVENT DATE: 20080318
